FAERS Safety Report 6163593-2 (Version None)
Quarter: 2009Q2

REPORT INFORMATION
  Report Type: 
  Country: None (occurrence: None)
  Receive Date: 20090420
  Receipt Date: 20080610
  Transmission Date: 20091009
  Serious: Yes (Other)
  Sender: FDA-Public Use
  Company Number: SPV1-2008-01287

PATIENT
  Age: 68 Year
  Sex: Male
  Weight: 86.2 kg

DRUGS (9)
  1. LIALDA [Suspect]
     Indication: IRRITABLE BOWEL SYNDROME
     Dosage: 2.4 G, 1X/DAY:QD, ORAL
     Route: 048
     Dates: start: 20080402, end: 20080601
  2. OMEPRAZOLE [Concomitant]
  3. TENORMIN [Concomitant]
  4. VYTORIN [Concomitant]
  5. LISINOPRIL [Concomitant]
  6. LANTUS [Concomitant]
  7. METFORMIN HCL [Concomitant]
  8. PRANDIN [Concomitant]
  9. AMARYL [Concomitant]

REACTIONS (3)
  - DRUG INEFFECTIVE FOR UNAPPROVED INDICATION [None]
  - FLATULENCE [None]
  - HAEMATOCHEZIA [None]
